FAERS Safety Report 9964347 (Version 1)
Quarter: 2014Q1

REPORT INFORMATION
  Report Type: Spontaneous
  Country: JP (occurrence: JP)
  Receive Date: 20140305
  Receipt Date: 20140305
  Transmission Date: 20141002
  Serious: Yes (Other)
  Sender: FDA-Public Use
  Company Number: CHPA2014JP003314

PATIENT
  Age: 70 Year
  Sex: Male

DRUGS (3)
  1. NICOTINELL TTS [Suspect]
     Indication: SMOKING CESSATION THERAPY
     Dosage: 35 MG, QD
     Route: 062
     Dates: start: 20140224, end: 20140224
  2. GLYCYRON [Concomitant]
     Route: 065
  3. LOXONIN [Concomitant]
     Route: 065

REACTIONS (1)
  - Application site vesicles [Recovering/Resolving]
